FAERS Safety Report 10426546 (Version 1)
Quarter: 2014Q3

REPORT INFORMATION
  Report Type: Spontaneous
  Country: US (occurrence: US)
  Receive Date: 20140903
  Receipt Date: 20140903
  Transmission Date: 20150326
  Serious: No
  Sender: FDA-Public Use
  Company Number: US-PFIZER INC-2014241953

PATIENT
  Sex: Female

DRUGS (1)
  1. LEVOTHYROXINE SODIUM. [Suspect]
     Active Substance: LEVOTHYROXINE SODIUM
     Indication: HYPOTHYROIDISM
     Dosage: UNK, 1X/DAY
     Route: 048
     Dates: start: 2000, end: 2012

REACTIONS (6)
  - Hyperhidrosis [Unknown]
  - Peripheral swelling [Unknown]
  - Drug ineffective [Unknown]
  - Weight increased [Unknown]
  - Thyroid disorder [Unknown]
  - Swelling [Unknown]

NARRATIVE: CASE EVENT DATE: 2006
